FAERS Safety Report 21410668 (Version 1)
Quarter: 2022Q4

REPORT INFORMATION
  Report Type: Spontaneous
  Country: US (occurrence: US)
  Receive Date: 20221005
  Receipt Date: 20221005
  Transmission Date: 20230112
  Serious: Yes (Other)
  Sender: FDA-Public Use
  Company Number: US-NOVARTISPH-NVSC2022US220320

PATIENT
  Sex: Female
  Weight: 54.43 kg

DRUGS (3)
  1. CYCLOSPORINE [Suspect]
     Active Substance: CYCLOSPORINE
     Indication: Renal transplant
     Dosage: 125 MG, BID (3 IN MORNING 2 IN EVENING)
     Route: 048
  2. RAPAMUNE [Concomitant]
     Active Substance: SIROLIMUS
     Indication: Renal transplant
     Dosage: 0.5 MG, QD
     Route: 048
     Dates: start: 202012
  3. PREDNISONE [Concomitant]
     Active Substance: PREDNISONE
     Indication: Renal transplant
     Dosage: 2.5 MG, QOD
     Route: 048

REACTIONS (2)
  - Skin cancer [Recovering/Resolving]
  - Hypertension [Unknown]
